FAERS Safety Report 9291198 (Version 1)
Quarter: 2013Q2

REPORT INFORMATION
  Report Type: Spontaneous
  Country: GB (occurrence: GB)
  Receive Date: 20130515
  Receipt Date: 20130515
  Transmission Date: 20140414
  Serious: Yes (Disabling, Other)
  Sender: FDA-Public Use
  Company Number: GB-ABBOTT-13P-167-1090123-00

PATIENT
  Sex: Female

DRUGS (2)
  1. HUMIRA [Suspect]
     Indication: PRODUCT USED FOR UNKNOWN INDICATION
  2. HUMIRA [Suspect]

REACTIONS (6)
  - Impaired work ability [Unknown]
  - Influenza [Unknown]
  - Cough [Unknown]
  - Ear pain [Unknown]
  - Pain [Unknown]
  - Activities of daily living impaired [Unknown]
